FAERS Safety Report 18106058 (Version 1)
Quarter: 2020Q3

REPORT INFORMATION
  Report Type: Spontaneous
  Country: US (occurrence: US)
  Receive Date: 20200803
  Receipt Date: 20200803
  Transmission Date: 20201103
  Serious: No
  Sender: FDA-Public Use
  Company Number: US-AMGEN-USASP2020121714

PATIENT
  Age: 80 Year
  Sex: Female

DRUGS (1)
  1. PROLIA [Suspect]
     Active Substance: DENOSUMAB
     Indication: OSTEOPOROSIS POSTMENOPAUSAL
     Dosage: 60 MILLIGRAM, Q6MO
     Route: 058
     Dates: start: 2010

REACTIONS (7)
  - Musculoskeletal discomfort [Unknown]
  - Pelvic pain [Unknown]
  - Muscle disorder [Unknown]
  - Infection [Unknown]
  - Cystitis [Unknown]
  - Renal disorder [Unknown]
  - Jaw disorder [Unknown]

NARRATIVE: CASE EVENT DATE: 2015
